FAERS Safety Report 4704594-8 (Version None)
Quarter: 2005Q2

REPORT INFORMATION
  Report Type: 
  Country: None (occurrence: None)
  Receive Date: 20050629
  Receipt Date: 20050615
  Transmission Date: 20051028
  Serious: Yes (Hospitalization)
  Sender: FDA-Public Use
  Company Number: 2005P1000038

PATIENT
  Age: 55 Year
  Sex: Male

DRUGS (6)
  1. ACEBUTOLOL HCL [Suspect]
     Dosage: QD; PO
     Route: 048
     Dates: start: 20050114
  2. PERINDOPRIL [Concomitant]
  3. BROMAZEPAM [Concomitant]
  4. ACETYLSALICYLATE LYSINE [Concomitant]
  5. CLOPIDOGREL BISULFATE [Concomitant]
  6. SIMVASTATIN [Concomitant]

REACTIONS (1)
  - TENDON RUPTURE [None]
